FAERS Safety Report 10191869 (Version 2)
Quarter: 2014Q2

REPORT INFORMATION
  Report Type: Spontaneous
  Country: US (occurrence: US)
  Receive Date: 20140523
  Receipt Date: 20140604
  Transmission Date: 20141212
  Serious: Yes (Hospitalization)
  Sender: FDA-Public Use
  Company Number: US-GLAXOSMITHKLINE-A1073670A

PATIENT
  Age: 68 Year
  Sex: Male

DRUGS (9)
  1. ADVAIR [Suspect]
     Indication: EMPHYSEMA
     Dosage: 1PUFF TWICE PER DAY
     Route: 055
     Dates: start: 2011
  2. SPIRIVA [Suspect]
     Indication: PRODUCT USED FOR UNKNOWN INDICATION
     Route: 065
  3. PLAVIX [Concomitant]
  4. METOPROLOL [Concomitant]
  5. AMLODIPINE [Concomitant]
  6. NIASPAN [Concomitant]
  7. COQ10 [Concomitant]
  8. BABY ASPIRIN [Concomitant]
  9. IRON PILLS [Concomitant]

REACTIONS (7)
  - Pneumonia [Recovering/Resolving]
  - Lung infection [Recovering/Resolving]
  - Nasopharyngitis [Recovering/Resolving]
  - Dysphonia [Unknown]
  - Intracranial aneurysm [Unknown]
  - Pulmonary mass [Unknown]
  - Cataract operation [Unknown]
